FAERS Safety Report 20663298 (Version 2)
Quarter: 2022Q2

REPORT INFORMATION
  Report Type: Spontaneous
  Country: US (occurrence: US)
  Receive Date: 20220401
  Receipt Date: 20220429
  Transmission Date: 20220720
  Serious: Yes (Other)
  Sender: FDA-Public Use
  Company Number: US-GLAXOSMITHKLINE-USCH2022AMR012062

PATIENT
  Age: 19 Year
  Sex: Female

DRUGS (22)
  1. LORATADINE [Suspect]
     Active Substance: LORATADINE
     Indication: Mast cell activation syndrome
     Dosage: UNK
  2. KETOTIFEN [Suspect]
     Active Substance: KETOTIFEN
     Indication: Product used for unknown indication
     Dosage: 2 MG, QD, DAILY
  3. KETOTIFEN [Suspect]
     Active Substance: KETOTIFEN
     Dosage: 1.5 MG
  4. FAMOTIDINE [Suspect]
     Active Substance: FAMOTIDINE
     Indication: Product used for unknown indication
     Dosage: UNK
  5. RANITIDINE [Suspect]
     Active Substance: RANITIDINE
     Indication: Product used for unknown indication
     Dosage: UNK
  6. CETIRIZINE [Suspect]
     Active Substance: CETIRIZINE HYDROCHLORIDE
     Indication: Product used for unknown indication
     Dosage: UNK
  7. LEVOCETIRIZINE [Suspect]
     Active Substance: LEVOCETIRIZINE
     Indication: Product used for unknown indication
     Dosage: UNK
  8. HYDROXYZINE [Suspect]
     Active Substance: HYDROXYZINE HYDROCHLORIDE
     Indication: Product used for unknown indication
     Dosage: UNK
  9. MONTELUKAST [Suspect]
     Active Substance: MONTELUKAST SODIUM
     Indication: Product used for unknown indication
     Dosage: UNK
  10. RIFAMPIN [Suspect]
     Active Substance: RIFAMPIN
     Indication: Product used for unknown indication
     Dosage: UNK
  11. MINOCYCLINE [Suspect]
     Active Substance: MINOCYCLINE HYDROCHLORIDE
     Indication: Product used for unknown indication
     Dosage: UNK
  12. VILAZODONE [Suspect]
     Active Substance: VILAZODONE
     Indication: Product used for unknown indication
     Dosage: UNK
  13. LAMOTRIGINE [Suspect]
     Active Substance: LAMOTRIGINE
     Indication: Product used for unknown indication
     Dosage: UNK
  14. BUPROPION [Suspect]
     Active Substance: BUPROPION
     Indication: Product used for unknown indication
     Dosage: UNK
  15. ATOVAQUONE [Suspect]
     Active Substance: ATOVAQUONE
     Indication: Product used for unknown indication
     Dosage: 200 MG, BID
  16. CEFTRIAXONE [Suspect]
     Active Substance: CEFTRIAXONE
     Indication: Product used for unknown indication
     Dosage: UNK
  17. CEFUROXIME [Suspect]
     Active Substance: CEFUROXIME
     Indication: Product used for unknown indication
     Dosage: UNK
  18. DIPHENHYDRAMINE [Suspect]
     Active Substance: DIPHENHYDRAMINE
     Indication: Product used for unknown indication
     Dosage: UNK
  19. FEXOFENADINE [Suspect]
     Active Substance: FEXOFENADINE HYDROCHLORIDE
     Indication: Product used for unknown indication
     Dosage: UNK
  20. CROMOLYN [Suspect]
     Active Substance: CROMOLYN
     Indication: Product used for unknown indication
     Dosage: UNK
  21. GLEEVEC [Suspect]
     Active Substance: IMATINIB MESYLATE
     Indication: Product used for unknown indication
     Dosage: UNK
  22. PRUCALOPRIDE [Suspect]
     Active Substance: PRUCALOPRIDE
     Indication: Product used for unknown indication
     Dosage: UNK

REACTIONS (30)
  - Leukopenia [Unknown]
  - Obsessive-compulsive disorder [Unknown]
  - Tick-borne viral encephalitis [Unknown]
  - Encephalopathy [Unknown]
  - Cerebral disorder [Recovering/Resolving]
  - Cognitive disorder [Recovering/Resolving]
  - Condition aggravated [Unknown]
  - Fatigue [Unknown]
  - Dizziness [Unknown]
  - Constipation [Recovering/Resolving]
  - Oligomenorrhoea [Unknown]
  - Mood swings [Unknown]
  - Depression [Unknown]
  - Anxiety [Unknown]
  - Urge incontinence [Unknown]
  - Dry mouth [Unknown]
  - Temperature intolerance [Unknown]
  - Irritability [Unknown]
  - Decreased appetite [Unknown]
  - Food intolerance [Unknown]
  - Eructation [Unknown]
  - Abdominal pain [Unknown]
  - Increased tendency to bruise [Unknown]
  - Atopy [Unknown]
  - Lentigo [Unknown]
  - Mechanical urticaria [Unknown]
  - Laboratory test abnormal [Unknown]
  - Drug intolerance [Unknown]
  - Heart rate increased [Unknown]
  - Drug ineffective [Unknown]
